FAERS Safety Report 5480365-2 (Version None)
Quarter: 2007Q4

REPORT INFORMATION
  Report Type: 
  Country: None (occurrence: None)
  Receive Date: 20071009
  Receipt Date: 20071002
  Transmission Date: 20080405
  Serious: Yes (Other)
  Sender: FDA-Public Use
  Company Number: US-ASTRAZENECA-2007UW22953

PATIENT
  Age: 67 Year
  Sex: Male
  Weight: 140.9 kg

DRUGS (8)
  1. TOPROL-XL [Suspect]
     Indication: CARDIAC DISORDER
     Route: 048
  2. PREVACID [Suspect]
     Indication: GASTROOESOPHAGEAL REFLUX DISEASE
     Route: 048
     Dates: start: 20040101
  3. ZOCOR [Suspect]
     Indication: BLOOD CHOLESTEROL INCREASED
     Route: 048
  4. HYZAAR [Suspect]
     Indication: HYPERTENSION
     Route: 048
  5. ENALAPRIL MALEATE [Suspect]
     Indication: HYPERTENSION
     Route: 048
  6. DILTIAZEM [Suspect]
     Indication: HYPERTENSION
     Route: 048
  7. ASPIRIN [Suspect]
     Indication: CARDIAC DISORDER
     Route: 048
  8. ASPIRIN [Suspect]
     Indication: HEADACHE
     Route: 048

REACTIONS (1)
  - BLOOD GLUCOSE INCREASED [None]
